FAERS Safety Report 16773074 (Version 2)
Quarter: 2019Q4

REPORT INFORMATION
  Report Type: Spontaneous
  Country: CA (occurrence: CA)
  Receive Date: 20190904
  Receipt Date: 20191028
  Transmission Date: 20200122
  Serious: Yes (Hospitalization, Other)
  Sender: FDA-Public Use
  Company Number: CA-TEVA-2019-CA-1100962

PATIENT
  Age: 18 Year
  Sex: Male
  Weight: 45 kg

DRUGS (7)
  1. FLUDARABINE [Suspect]
     Active Substance: FLUDARABINE PHOSPHATE
     Indication: BONE MARROW TRANSPLANT
     Dosage: 56 MILLIGRAM DAILY;
     Route: 042
  2. ONDANSETRON [Concomitant]
     Active Substance: ONDANSETRON
  3. RANITIDINE. [Concomitant]
     Active Substance: RANITIDINE
  4. FAMCICLOVIR. [Concomitant]
     Active Substance: FAMCICLOVIR
  5. DIMENHYDRINATE. [Concomitant]
     Active Substance: DIMENHYDRINATE
  6. LORAZEPAM. [Concomitant]
     Active Substance: LORAZEPAM
  7. DEXAMETHASONE. [Suspect]
     Active Substance: DEXAMETHASONE
     Indication: BONE MARROW TRANSPLANT
     Dosage: 36 MILLIGRAM DAILY;
     Route: 042

REACTIONS (3)
  - Headache [Recovering/Resolving]
  - Back pain [Recovering/Resolving]
  - Sickle cell anaemia with crisis [Recovering/Resolving]
